FAERS Safety Report 8800690 (Version 1)
Quarter: 2012Q4

REPORT INFORMATION
  Report Type: 
  Country: CZ (occurrence: CZ)
  Receive Date: 20120921
  Receipt Date: 20120921
  Transmission Date: 20130627
  Serious: Yes (Other)
  Sender: FDA-Public Use
  Company Number: CZ-SANOFI-AVENTIS-2012SA065180

PATIENT
  Age: 42 Year
  Sex: Female

DRUGS (10)
  1. PACLITAXEL [Suspect]
     Indication: BREAST CANCER
     Dosage: infusion, total dose of 150 mg, applied for 1 hour, 12 weekly cycles
     Route: 065
  2. CYCLOPHOSPHAMIDE [Suspect]
     Indication: BREAST CANCER
     Dosage: infusion; 4 cycles
     Route: 065
  3. DOXORUBICIN [Suspect]
     Indication: BREAST CANCER
     Dosage: infusion, 4 cycles
     Route: 065
  4. DEXAMETHASONE [Suspect]
     Indication: PREMEDICATION
     Dosage: 12 h prior to weekly paclitaxel administration
     Route: 065
  5. ONDANSETRON HYDROCHLORIDE [Suspect]
     Indication: PREMEDICATION
     Dosage: 30 min prior to weekly paclitaxel administration
     Route: 065
  6. DOCETAXEL [Suspect]
     Indication: BREAST CANCER
     Dosage: infusion; total dose 167 mg, applied for 1 hour, 4 cycles
     Route: 065
  7. DOCETAXEL [Suspect]
     Indication: BREAST CANCER
     Dosage: infusion; total dose 167 mg, applied for 1 hour, 4 cycles
     Route: 065
  8. RANITIDINE [Suspect]
     Indication: PREMEDICATION
     Dosage: 60 min prior to weekly paclitaxel administration
     Route: 065
  9. BISULEPIN [Suspect]
     Indication: PREMEDICATION
     Dosage: 30 min prior to weekly paclitaxel administration
     Route: 065
  10. LITHIUM [Concomitant]
     Indication: BIPOLAR AFFECTIVE DISORDER

REACTIONS (11)
  - Suicidal ideation [Recovered/Resolved]
  - Psychiatric symptom [Recovered/Resolved]
  - Anxiety [Recovered/Resolved]
  - Disturbance in attention [Recovered/Resolved]
  - Dysphemia [Recovered/Resolved]
  - Somatoform disorder [Recovered/Resolved]
  - Headache [Recovered/Resolved]
  - Hypoaesthesia [Recovered/Resolved]
  - Hallucination [Recovered/Resolved]
  - Hallucination, visual [Recovered/Resolved]
  - Hallucination, auditory [Recovered/Resolved]
